FAERS Safety Report 5370931-7 (Version None)
Quarter: 2007Q2

REPORT INFORMATION
  Report Type: 
  Country: None (occurrence: None)
  Receive Date: 20070626
  Receipt Date: 20070509
  Transmission Date: 20071010
  Serious: Yes (Hospitalization)
  Sender: FDA-Public Use
  Company Number: JP-PFIZER INC-2006154012

PATIENT
  Age: 66 Year
  Sex: Female

DRUGS (15)
  1. LIPITOR [Suspect]
     Indication: HYPERLIPIDAEMIA
     Dosage: DAILY DOSE:5MG
     Route: 048
  2. PROGRAF [Suspect]
     Indication: RHEUMATOID ARTHRITIS
     Dosage: DAILY DOSE:1MG
     Route: 048
  3. PROGRAF [Suspect]
     Dosage: DAILY DOSE:1MG
     Route: 048
  4. DORNER [Suspect]
     Indication: ARTERIAL OCCLUSIVE DISEASE
     Dosage: DAILY DOSE:60MCG
     Route: 048
  5. PREDNISOLONE [Suspect]
     Indication: RHEUMATOID ARTHRITIS
     Dosage: DAILY DOSE:6MG
     Route: 048
  6. PREDNISOLONE [Suspect]
     Dosage: DAILY DOSE:4MG
  7. HYPEN [Concomitant]
     Indication: RHEUMATOID ARTHRITIS
     Dosage: DAILY DOSE:400MG
     Route: 048
  8. PARIET [Concomitant]
     Dosage: DAILY DOSE:10MG
     Route: 048
  9. RISEDRONATE SODIUM HYDRATE [Concomitant]
     Indication: OSTEOPOROSIS
     Dosage: DAILY DOSE:2.5MG
     Route: 048
  10. AMLODIN [Concomitant]
     Indication: HYPERTENSION
     Dosage: DAILY DOSE:5MG
     Route: 048
  11. NU LOTAN [Concomitant]
     Indication: HYPERTENSION
     Dosage: DAILY DOSE:50MG
     Route: 048
  12. ALLEGRA [Concomitant]
     Indication: URTICARIA CHRONIC
     Dosage: DAILY DOSE:60MG
     Route: 048
  13. NORVASC [Concomitant]
     Indication: HYPERTENSION
     Route: 048
  14. ACTONEL [Concomitant]
     Indication: OSTEOPOROSIS
     Route: 048
  15. MARZULENE [Concomitant]
     Indication: GASTRITIS
     Route: 048

REACTIONS (1)
  - ACUTE MYOCARDIAL INFARCTION [None]
